FAERS Safety Report 7373879-1 (Version None)
Quarter: 2011Q1

REPORT INFORMATION
  Report Type: 
  Country: None (occurrence: None)
  Receive Date: 20110325
  Receipt Date: 20110318
  Transmission Date: 20110831
  Serious: No
  Sender: FDA-Public Use
  Company Number: US-PFIZER INC-2011062010

PATIENT
  Sex: Female

DRUGS (1)
  1. PROCARDIA XL [Suspect]
     Dosage: 30 MG, UNK

REACTIONS (2)
  - CHEST PAIN [None]
  - BLOOD PRESSURE INADEQUATELY CONTROLLED [None]
